FAERS Safety Report 23474844 (Version 1)
Quarter: 2024Q1

REPORT INFORMATION
  Report Type: Report from Study
  Country: US (occurrence: US)
  Receive Date: 20240204
  Receipt Date: 20240204
  Transmission Date: 20240410
  Serious: Yes (Other)
  Sender: FDA-Public Use
  Company Number: US-EXELIXIS-CABO-23066989

PATIENT
  Age: 67 Year
  Sex: Male

DRUGS (18)
  1. CABOMETYX [Suspect]
     Active Substance: CABOZANTINIB S-MALATE
     Indication: Renal cancer stage IV
     Dosage: 60 MG, QD
     Route: 048
     Dates: start: 20230413, end: 20230518
  2. CABOMETYX [Suspect]
     Active Substance: CABOZANTINIB S-MALATE
     Indication: Metastases to lung
     Dosage: 60 MG, QOD
     Route: 048
     Dates: start: 20230614
  3. CABOMETYX [Suspect]
     Active Substance: CABOZANTINIB S-MALATE
     Indication: Metastases to lymph nodes
     Dosage: 40 MG, QD
     Route: 048
     Dates: end: 20230806
  4. KEYTRUDA [Suspect]
     Active Substance: PEMBROLIZUMAB
     Indication: Renal cell carcinoma stage IV
     Dosage: 200 MG, Q3WEEKS
     Route: 042
     Dates: start: 20230620
  5. KEYTRUDA [Suspect]
     Active Substance: PEMBROLIZUMAB
     Indication: Metastases to lung
     Dosage: 200 MG, Q3WEEKS
     Route: 042
     Dates: start: 20230802
  6. KEYTRUDA [Suspect]
     Active Substance: PEMBROLIZUMAB
     Indication: Metastases to lymph nodes
  7. TYLENOL EXTRA STRENGTH [Concomitant]
     Active Substance: ACETAMINOPHEN
  8. VITAMIN C [Concomitant]
     Active Substance: ASCORBIC ACID
  9. VITAMIN D3 [Concomitant]
     Active Substance: CHOLECALCIFEROL
  10. LISINOPRIL [Concomitant]
     Active Substance: LISINOPRIL
  11. LORAZEPAM [Concomitant]
     Active Substance: LORAZEPAM
  12. MAGNESIUM OXIDE [Concomitant]
     Active Substance: MAGNESIUM OXIDE
  13. NITROSTAT [Concomitant]
     Active Substance: NITROGLYCERIN
  14. PERCOCET [Concomitant]
     Active Substance: ACETAMINOPHEN\OXYCODONE HYDROCHLORIDE
  15. PROTONIX [Concomitant]
     Active Substance: PANTOPRAZOLE SODIUM
  16. COMPAZINE [Concomitant]
     Active Substance: PROCHLORPERAZINE MALEATE
  17. TAMSULOSIN [Concomitant]
     Active Substance: TAMSULOSIN
  18. PREDNISONE [Concomitant]
     Active Substance: PREDNISONE
     Indication: Arthralgia

REACTIONS (16)
  - Malignant neoplasm progression [Unknown]
  - Metastases to pelvis [Unknown]
  - Metastases to abdominal cavity [Unknown]
  - Metastases to thorax [Unknown]
  - Intestinal metastasis [Unknown]
  - Metastases to lung [Unknown]
  - Peripheral swelling [Recovered/Resolved]
  - Blister [Recovered/Resolved]
  - Blood albumin decreased [Unknown]
  - Hypertension [Unknown]
  - Fatigue [Recovered/Resolved]
  - Asthenia [Recovered/Resolved]
  - Decreased appetite [Unknown]
  - Confusional state [Unknown]
  - Product prescribing issue [Unknown]
  - Inappropriate schedule of product administration [Unknown]

NARRATIVE: CASE EVENT DATE: 20230612
